FAERS Safety Report 7520715-6 (Version None)
Quarter: 2011Q2

REPORT INFORMATION
  Report Type: 
  Country: None (occurrence: None)
  Receive Date: 20110603
  Receipt Date: 20101107
  Transmission Date: 20111010
  Serious: Yes (Other)
  Sender: FDA-Public Use
  Company Number: GB-BAYER-200910854BNE

PATIENT
  Age: 57 Year
  Sex: Female
  Weight: 62.8 kg

DRUGS (3)
  1. RAMIPRIL [Concomitant]
     Indication: HYPERTENSION
     Dosage: 5 MG (DAILY DOSE), QD, ORAL
     Route: 048
     Dates: start: 20070223
  2. BENDROFLUMETHIAZIDE [Concomitant]
     Indication: HYPERTENSION
     Dosage: 2.5 MG (DAILY DOSE), QD, ORAL
     Route: 048
     Dates: start: 20060811
  3. SORAFENIB (RAF KINASE INHIBITOR) [Suspect]
     Indication: ANTICOAGULANT THERAPY
     Dosage: 400 MG (DAILY DOSE), , ORAL
     Route: 048
     Dates: start: 20060526

REACTIONS (3)
  - RETINAL VEIN OCCLUSION [None]
  - VISUAL IMPAIRMENT [None]
  - HYPERTENSION [None]
